FAERS Safety Report 23363651 (Version 3)
Quarter: 2024Q1

REPORT INFORMATION
  Report Type: Spontaneous
  Country: CA (occurrence: CA)
  Receive Date: 20240103
  Receipt Date: 20240328
  Transmission Date: 20240410
  Serious: Yes (Hospitalization, Other)
  Sender: FDA-Public Use
  Company Number: CA-SANDOZ-SDZ2023CA074519

PATIENT
  Age: 11 Year
  Sex: Male

DRUGS (42)
  1. ARIPIPRAZOLE [Suspect]
     Active Substance: ARIPIPRAZOLE
     Indication: Product used for unknown indication
     Dosage: 2 MG
     Route: 048
  2. BACLOFEN [Suspect]
     Active Substance: BACLOFEN
     Indication: Product used for unknown indication
     Dosage: 20 MG
     Route: 048
  3. BISACODYL [Suspect]
     Active Substance: BISACODYL
     Indication: Product used for unknown indication
     Dosage: 5 MG
     Route: 048
  4. CELECOXIB [Suspect]
     Active Substance: CELECOXIB
     Indication: Pain management
     Dosage: 100 MG
     Route: 048
  5. CLONIDINE [Suspect]
     Active Substance: CLONIDINE
     Indication: Product used for unknown indication
     Dosage: 0.05 MG
     Route: 048
  6. CLONIDINE [Suspect]
     Active Substance: CLONIDINE
     Dosage: 0.1 MG
     Route: 048
  7. CHOLECALCIFEROL [Suspect]
     Active Substance: CHOLECALCIFEROL
     Dosage: 200 IU, QD
     Route: 048
  8. CHOLECALCIFEROL [Suspect]
     Active Substance: CHOLECALCIFEROL
     Indication: Product used for unknown indication
     Dosage: UNK, QD
     Route: 048
  9. CLOBAZAM [Suspect]
     Active Substance: CLOBAZAM
     Indication: Back pain
     Dosage: 20 MG
     Route: 048
  10. DIMENHYDRINATE [Suspect]
     Active Substance: DIMENHYDRINATE
     Indication: Constipation
     Dosage: 25 MG
     Route: 048
  11. DIPHENHYDRAMINE [Suspect]
     Active Substance: DIPHENHYDRAMINE
     Indication: Pruritus
     Dosage: 12.5 MG
     Route: 048
  12. ELIGARD [Suspect]
     Active Substance: LEUPROLIDE ACETATE
     Indication: Precocious puberty
     Dosage: UNK
     Route: 030
  13. FISH OIL [Suspect]
     Active Substance: FISH OIL
     Indication: Product used for unknown indication
     Dosage: 200 MG, QD
     Route: 048
  14. FLUOXETINE HYDROCHLORIDE [Suspect]
     Active Substance: FLUOXETINE HYDROCHLORIDE
     Indication: Product used for unknown indication
     Dosage: 20 MG
     Route: 048
  15. FLUTICASONE [Suspect]
     Active Substance: FLUTICASONE
     Dosage: 250 MG, QD
     Route: 048
  16. FLUTICASONE [Suspect]
     Active Substance: FLUTICASONE
     Indication: Product used for unknown indication
     Dosage: UNK, QD
     Route: 055
  17. GABAPENTIN [Suspect]
     Active Substance: GABAPENTIN
     Indication: Pain management
     Dosage: 600 MG, BID
     Route: 048
  18. GABAPENTIN [Suspect]
     Active Substance: GABAPENTIN
     Dosage: 600 MG, TID
     Route: 048
  19. HYDROMORPHONE HYDROCHLORIDE [Suspect]
     Active Substance: HYDROMORPHONE HYDROCHLORIDE
     Indication: Pain management
     Dosage: 0.5 MG
     Route: 060
  20. HYDROXYCHLOROQUINE [Suspect]
     Active Substance: HYDROXYCHLOROQUINE
     Indication: Product used for unknown indication
     Dosage: 400 MG
     Route: 048
  21. KETOROLAC [Suspect]
     Active Substance: KETOROLAC TROMETHAMINE
     Indication: Pain
     Dosage: 20 MG
     Route: 065
  22. LORAZEPAM [Suspect]
     Active Substance: LORAZEPAM
     Indication: Pain management
     Dosage: 0.5 MG
     Route: 060
  23. LORAZEPAM [Suspect]
     Active Substance: LORAZEPAM
     Indication: Muscle spasms
     Dosage: 2.0 MG
     Route: 060
  24. LORAZEPAM [Suspect]
     Active Substance: LORAZEPAM
     Indication: Seizure
     Dosage: UNK
     Route: 065
  25. LEUPROLIDE ACETATE [Suspect]
     Active Substance: ISOPROPYL ALCOHOL\LEUPROLIDE ACETATE
     Indication: Product used for unknown indication
     Dosage: 7.5 MG, QMO
     Route: 030
  26. MONTELUKAST [Suspect]
     Active Substance: MONTELUKAST SODIUM
     Indication: Product used for unknown indication
     Dosage: 10 MG
     Route: 065
  27. POLYETHYLENE GLYCOLS [Suspect]
     Active Substance: POLYETHYLENE GLYCOLS
     Dosage: 30 MG, Q12H
     Route: 065
  28. POLYETHYLENE GLYCOLS [Suspect]
     Active Substance: POLYETHYLENE GLYCOLS
     Indication: Product used for unknown indication
     Dosage: 30 MG, BID
     Route: 048
  29. POLYETHYLENE GLYCOL 3350\POTASSIUM CHLORIDE\SODIUM BICARBONATE\SODIUM [Suspect]
     Active Substance: POLYETHYLENE GLYCOL 3350\POTASSIUM CHLORIDE\SODIUM BICARBONATE\SODIUM CHLORIDE
     Indication: Product used for unknown indication
     Dosage: 30 MG
     Route: 065
  30. MELATONIN [Suspect]
     Active Substance: MELATONIN
     Indication: Sleep deficit
     Dosage: 10 MG
     Route: 048
  31. METHADONE HYDROCHLORIDE [Suspect]
     Active Substance: METHADONE HYDROCHLORIDE
     Indication: Back pain
     Dosage: 2 MG, TID
     Route: 048
  32. METHOCARBAMOL [Suspect]
     Active Substance: METHOCARBAMOL
     Dosage: UNK, BID
     Route: 048
  33. METHOCARBAMOL [Suspect]
     Active Substance: METHOCARBAMOL
     Indication: Product used for unknown indication
     Dosage: UNK
     Route: 048
  34. METHOCARBAMOL [Suspect]
     Active Substance: METHOCARBAMOL
     Dosage: UNK
     Route: 065
  35. PANTOPRAZOLE [Suspect]
     Active Substance: PANTOPRAZOLE
     Indication: Product used for unknown indication
     Dosage: UNK
     Route: 048
  36. PHENOBARBITAL [Suspect]
     Active Substance: PHENOBARBITAL
     Indication: Product used for unknown indication
     Dosage: 30 MG
     Route: 048
  37. RANITIDINE [Suspect]
     Active Substance: RANITIDINE
     Indication: Product used for unknown indication
     Route: 065
  38. ALBUTEROL [Suspect]
     Active Substance: ALBUTEROL
     Dosage: 100 MG
     Route: 055
  39. ALBUTEROL [Suspect]
     Active Substance: ALBUTEROL
     Indication: Product used for unknown indication
     Dosage: 150 MG
     Route: 055
  40. TYLENOL EXTRA STRENGTH [Suspect]
     Active Substance: ACETAMINOPHEN
     Indication: Product used for unknown indication
     Dosage: 400 MG
     Route: 065
  41. VITAMIN C [Suspect]
     Active Substance: ASCORBIC ACID
     Indication: Product used for unknown indication
     Dosage: 1500 MG, QD
     Route: 048
  42. VITAMIN C [Suspect]
     Active Substance: ASCORBIC ACID
     Dosage: 1500 MG, QD
     Route: 048

REACTIONS (8)
  - Tenderness [Recovered/Resolved]
  - Respiratory depression [Recovered/Resolved]
  - Drug abuse [Recovered/Resolved]
  - Drug dependence [Recovered/Resolved]
  - Drug ineffective [Recovered/Resolved]
  - Off label use [Recovered/Resolved]
  - Product prescribing error [Recovered/Resolved]
  - Product use issue [Recovered/Resolved]
